FAERS Safety Report 18095447 (Version 1)
Quarter: 2020Q3

REPORT INFORMATION
  Report Type: Report from Study
  Country: FI (occurrence: FI)
  Receive Date: 20200730
  Receipt Date: 20200730
  Transmission Date: 20201103
  Serious: Yes (Hospitalization)
  Sender: FDA-Public Use
  Company Number: FI-MYLANLABS-2020M1067798

PATIENT
  Age: 71 Year
  Sex: Female

DRUGS (3)
  1. LEPONEX [Suspect]
     Active Substance: CLOZAPINE
     Indication: PRODUCT USED FOR UNKNOWN INDICATION
     Dosage: UNK
     Dates: start: 202006, end: 202007
  2. LEPONEX [Suspect]
     Active Substance: CLOZAPINE
     Dosage: DOSE WAS HALVED TEMPORARILY
     Dates: start: 202007, end: 202007
  3. LEPONEX [Suspect]
     Active Substance: CLOZAPINE
     Dosage: THE DOSE WAS RETURNED TO THE ORIGINAL
     Dates: start: 202007

REACTIONS (6)
  - Fatigue [Unknown]
  - C-reactive protein increased [Unknown]
  - Asthenia [Unknown]
  - Infection [Unknown]
  - Tachycardia [Unknown]
  - Pyrexia [Unknown]

NARRATIVE: CASE EVENT DATE: 202007
